FAERS Safety Report 4336181-8 (Version None)
Quarter: 2004Q2

REPORT INFORMATION
  Report Type: 
  Country: None (occurrence: None)
  Receive Date: 20040407
  Receipt Date: 20040329
  Transmission Date: 20050107
  Serious: Yes (Hospitalization)
  Sender: FDA-Public Use
  Company Number: HQWYE199029MAR04

PATIENT

DRUGS (1)
  1. ANCARON (AMIODARONE, TABLET) [Suspect]
     Dosage: 100 MG 1X PER 1 DAY ORAL
     Route: 048

REACTIONS (1)
  - INTERSTITIAL LUNG DISEASE [None]
